FAERS Safety Report 20622061 (Version 3)
Quarter: 2022Q1

REPORT INFORMATION
  Report Type: Spontaneous
  Country: US (occurrence: US)
  Receive Date: 20220322
  Receipt Date: 20220322
  Transmission Date: 20220424
  Serious: No
  Sender: FDA-Public Use
  Company Number: US-NOVOPROD-894281

PATIENT
  Age: 74 Year
  Sex: Female

DRUGS (3)
  1. WEGOVY [Suspect]
     Active Substance: SEMAGLUTIDE
     Indication: Obesity
     Dosage: 0.25 MG, QW(0.25 MG ONCE WEEKLY FOR 4 WEEKS)
     Route: 065
     Dates: start: 20211028
  2. WEGOVY [Suspect]
     Active Substance: SEMAGLUTIDE
     Indication: Obesity
     Dosage: 0.25 MG ONCE WEEKLY FOR 4 WEEKS; 0.50 WEEKLY FOR 7 WEEKS.
     Dates: start: 20211028
  3. WEGOVY [Suspect]
     Active Substance: SEMAGLUTIDE
     Indication: Obesity
     Dosage: UNK
     Route: 065

REACTIONS (3)
  - Increased appetite [Recovered/Resolved]
  - Injection site extravasation [Recovered/Resolved]
  - Drug ineffective [Recovered/Resolved]

NARRATIVE: CASE EVENT DATE: 20211011
